FAERS Safety Report 18882919 (Version 1)
Quarter: 2021Q1

REPORT INFORMATION
  Report Type: Spontaneous
  Country: IT (occurrence: IT)
  Receive Date: 20210212
  Receipt Date: 20210212
  Transmission Date: 20210420
  Serious: Yes (Life-Threatening, Hospitalization, Other)
  Sender: FDA-Public Use
  Company Number: IT-AUROBINDO-AUR-APL-2017-38373

PATIENT
  Age: 68 Year
  Sex: Female

DRUGS (14)
  1. CYTARABINE. [Suspect]
     Active Substance: CYTARABINE
     Dosage: UNK
     Route: 065
     Dates: start: 20160922
  2. RITUXIMAB. [Suspect]
     Active Substance: RITUXIMAB
     Indication: NON-HODGKIN^S LYMPHOMA
     Dosage: UNK
     Route: 065
     Dates: start: 201603
  3. RITUXIMAB. [Suspect]
     Active Substance: RITUXIMAB
     Dosage: UNK
     Route: 065
     Dates: start: 2016
  4. BENDAMUSTINE [Suspect]
     Active Substance: BENDAMUSTINE
     Indication: NON-HODGKIN^S LYMPHOMA
     Dosage: UNK
     Route: 065
     Dates: start: 2016
  5. OXALIPLATIN. [Suspect]
     Active Substance: OXALIPLATIN
     Indication: NON-HODGKIN^S LYMPHOMA
     Route: 065
     Dates: start: 201603
  6. PIPERACILLIN AND TAZOBACTAM [Concomitant]
     Active Substance: PIPERACILLIN SODIUM\TAZOBACTAM SODIUM
     Indication: PRODUCT USED FOR UNKNOWN INDICATION
     Dosage: UNK
     Route: 065
     Dates: start: 2016
  7. DEXAMETHASONE. [Suspect]
     Active Substance: DEXAMETHASONE
     Indication: NON-HODGKIN^S LYMPHOMA
     Dosage: UNK
     Route: 065
     Dates: start: 201603
  8. ETOPOSIDE. [Suspect]
     Active Substance: ETOPOSIDE
     Indication: NON-HODGKIN^S LYMPHOMA
     Dosage: UNK
     Route: 065
     Dates: start: 20160922
  9. VANCOMYCIN [Concomitant]
     Active Substance: VANCOMYCIN
     Dosage: UNK
     Route: 065
     Dates: start: 2016
  10. ACICLOVIR [Concomitant]
     Active Substance: ACYCLOVIR
     Indication: SEPTIC SHOCK
     Dosage: UNK
     Route: 065
     Dates: start: 201610
  11. FOTEMUSTINE [Suspect]
     Active Substance: FOTEMUSTINE
     Indication: NON-HODGKIN^S LYMPHOMA
     Dosage: UNK
     Route: 065
     Dates: start: 20160922
  12. MELPHALAN. [Suspect]
     Active Substance: MELPHALAN
     Indication: NON-HODGKIN^S LYMPHOMA
     Dosage: UNK
     Route: 065
     Dates: start: 20160922
  13. CYTARABINE. [Suspect]
     Active Substance: CYTARABINE
     Indication: NON-HODGKIN^S LYMPHOMA
     Dosage: HIGH?DOSE
     Route: 065
     Dates: start: 201603
  14. VANCOMYCIN [Concomitant]
     Active Substance: VANCOMYCIN
     Indication: SEPTIC SHOCK
     Dosage: UNK
     Route: 065
     Dates: start: 201610

REACTIONS (4)
  - Product use in unapproved indication [Unknown]
  - Stomatitis [Recovering/Resolving]
  - Streptococcal infection [Recovering/Resolving]
  - Cytomegalovirus infection [Recovering/Resolving]

NARRATIVE: CASE EVENT DATE: 2016
